FAERS Safety Report 16298462 (Version 27)
Quarter: 2023Q4

REPORT INFORMATION
  Report Type: Other
  Country: CA (occurrence: None)
  Receive Date: 20190510
  Receipt Date: 20231211
  Transmission Date: 20240109
  Serious: Yes (Other)
  Sender: FDA-Public Use
  Company Number: CA-ROCHE-2311651

PATIENT
  Age: 33 Year
  Sex: Female

DRUGS (10)
  1. OCREVUS [Suspect]
     Active Substance: OCRELIZUMAB
     Indication: Relapsing-remitting multiple sclerosis
     Dosage: 300 MG AT DAY 0 AND 14, THEN 600 MG EVERY 6 MONTH?SUBSEQUENT DOSE ON 23/APR/2019
     Route: 042
     Dates: start: 20190314
  2. DIHYDROMORPHINE [Concomitant]
     Active Substance: DIHYDROMORPHINE
     Indication: Product used for unknown indication
  3. TRAMADOL [Concomitant]
     Active Substance: TRAMADOL\TRAMADOL HYDROCHLORIDE
     Indication: Product used for unknown indication
  4. GABAPENTIN [Concomitant]
     Active Substance: GABAPENTIN
     Indication: Product used for unknown indication
  5. CANNABIDIOL\HERBALS [Concomitant]
     Active Substance: CANNABIDIOL\HERBALS
     Indication: Product used for unknown indication
  6. GRAVOL [Concomitant]
     Active Substance: DIMENHYDRINATE
  7. BACLOFEN [Concomitant]
     Active Substance: BACLOFEN
     Dosage: WHEN NEEDED
  8. FAMOTIDINE [Concomitant]
     Active Substance: FAMOTIDINE
     Dosage: 3 DAYS BEFORE THE INFUSION
  9. METOCLOPRAMIDE [Concomitant]
     Active Substance: METOCLOPRAMIDE
     Dosage: 4-6 DAYS AFTER THE INFUSION, TO HELP IN DIZINESS AND NAUSEA THAT HAPPEN AFTER THE INFUSION)
  10. LIDOCAINE [Concomitant]
     Active Substance: LIDOCAINE

REACTIONS (27)
  - Immunosuppression [Unknown]
  - Neck injury [Recovered/Resolved]
  - Limb injury [Not Recovered/Not Resolved]
  - Back injury [Recovered/Resolved]
  - Road traffic accident [Unknown]
  - Infusion related reaction [Recovered/Resolved]
  - Cough [Not Recovered/Not Resolved]
  - Nausea [Not Recovered/Not Resolved]
  - Dizziness [Not Recovered/Not Resolved]
  - Influenza [Recovering/Resolving]
  - Headache [Recovered/Resolved]
  - Fatigue [Recovering/Resolving]
  - Nasopharyngitis [Not Recovered/Not Resolved]
  - Therapeutic response shortened [Unknown]
  - Paraesthesia [Not Recovered/Not Resolved]
  - Hypoaesthesia [Not Recovered/Not Resolved]
  - Eye pain [Not Recovered/Not Resolved]
  - Eye irritation [Not Recovered/Not Resolved]
  - Asthenia [Not Recovered/Not Resolved]
  - Menstruation irregular [Not Recovered/Not Resolved]
  - Hypoaesthesia oral [Recovered/Resolved]
  - Pharyngeal hypoaesthesia [Recovered/Resolved]
  - Diarrhoea [Unknown]
  - Concussion [Unknown]
  - Head injury [Unknown]
  - Feeling abnormal [Unknown]
  - Infusion related reaction [Recovered/Resolved]

NARRATIVE: CASE EVENT DATE: 20190423
